FAERS Safety Report 24525613 (Version 1)
Quarter: 2024Q4

REPORT INFORMATION
  Report Type: Spontaneous
  Country: AU (occurrence: AU)
  Receive Date: 20241020
  Receipt Date: 20241020
  Transmission Date: 20250115
  Serious: Yes (Life-Threatening, Other)
  Sender: Kenvue
  Company Number: AU-KENVUE-20241000398

PATIENT

DRUGS (3)
  1. ACETAMINOPHEN [Suspect]
     Active Substance: ACETAMINOPHEN
     Indication: Product used for unknown indication
     Route: 065
  2. IBUPROFEN [Suspect]
     Active Substance: IBUPROFEN
     Indication: Product used for unknown indication
     Route: 065
  3. AMOXICILLIN [Suspect]
     Active Substance: AMOXICILLIN
     Indication: Product used for unknown indication
     Route: 065

REACTIONS (26)
  - Acute hepatic failure [Unknown]
  - Myocarditis [Unknown]
  - Encephalopathy [Unknown]
  - Ascites [Unknown]
  - Renal impairment [Recovering/Resolving]
  - Ventricular tachycardia [Unknown]
  - Vasoplegia syndrome [Unknown]
  - Cholecystitis [Unknown]
  - Rhythm idioventricular [Unknown]
  - Ventricular dysfunction [Unknown]
  - Abdominal pain [Unknown]
  - Coagulopathy [Unknown]
  - Hyperlactacidaemia [Unknown]
  - Blood bilirubin increased [Unknown]
  - Hypertension [Unknown]
  - Hyperlactacidaemia [Unknown]
  - Hypotension [Unknown]
  - International normalised ratio increased [Unknown]
  - Myopathy [Not Recovered/Not Resolved]
  - Respiratory disorder [Unknown]
  - Peripheral ischaemia [Unknown]
  - Myositis [Not Recovered/Not Resolved]
  - Toxicity to various agents [Unknown]
  - Troponin increased [Unknown]
  - Transaminases increased [Unknown]
  - Hypoglycaemia [Unknown]
